FAERS Safety Report 8890261 (Version 2)
Quarter: 2013Q1

REPORT INFORMATION
  Report Type: Spontaneous
  Country: IT (occurrence: None)
  Receive Date: 20121031
  Receipt Date: 20121221
  Transmission Date: 20140127
  Serious: Yes (Hospitalization)
  Sender: FDA-Public Use
  Company Number: TPA2012A08600

PATIENT
  Age: 55 Year
  Sex: Male

DRUGS (5)
  1. ADENURIC [Suspect]
     Indication: TUMOUR LYSIS SYNDROME
     Route: 048
     Dates: start: 20121004, end: 20121010
  2. ALLOPURINOL [Suspect]
     Indication: TUMOUR LYSIS SYNDROME
     Route: 048
     Dates: start: 20121004, end: 20121010
  3. TWICE (MORPHINE SULFATE) [Concomitant]
  4. MORPHINE [Concomitant]
  5. EFFENTORA (FENTANYL CITRATE) [Concomitant]

REACTIONS (2)
  - Febrile neutropenia [None]
  - Platelet count decreased [None]
